FAERS Safety Report 6360592-2 (Version None)
Quarter: 2009Q3

REPORT INFORMATION
  Report Type: 
  Country: None (occurrence: None)
  Receive Date: 20090915
  Receipt Date: 20090906
  Transmission Date: 20100115
  Serious: Yes (Hospitalization)
  Sender: FDA-Public Use
  Company Number: 230543J09USA

PATIENT
  Age: 44 Year
  Sex: Female

DRUGS (2)
  1. REBIF [Suspect]
     Indication: MULTIPLE SCLEROSIS
     Dosage: 44 MCG, 3 IN 1 WEEKS, SUBCUTANEOUS
     Route: 058
     Dates: start: 20050711
  2. MULTI-VITAMINS [Concomitant]

REACTIONS (8)
  - BALANCE DISORDER [None]
  - FACIAL PALSY [None]
  - FALL [None]
  - FLUSHING [None]
  - HYPERHIDROSIS [None]
  - INJECTION SITE PAIN [None]
  - MEMORY IMPAIRMENT [None]
  - TINNITUS [None]
